FAERS Safety Report 10703282 (Version 3)
Quarter: 2016Q2

REPORT INFORMATION
  Report Type: Spontaneous
  Country: US (occurrence: US)
  Receive Date: 20150112
  Receipt Date: 20160601
  Transmission Date: 20160815
  Serious: Yes (Other)
  Sender: FDA-Public Use
  Company Number: US-009507513-1501USA001872

PATIENT
  Age: 68 Year
  Sex: Female
  Weight: 57.14 kg

DRUGS (17)
  1. LIPTRUZET [Suspect]
     Active Substance: ATORVASTATIN CALCIUM\EZETIMIBE
     Indication: BLOOD CHOLESTEROL INCREASED
     Dosage: 1 DOSE FORM (10/40 MG), QD
     Route: 048
     Dates: start: 20130926
  2. KRILL OIL [Concomitant]
     Active Substance: DIETARY SUPPLEMENT
  3. VITAMIN B (UNSPECIFIED) [Concomitant]
  4. ELAVIL [Concomitant]
     Active Substance: AMITRIPTYLINE HYDROCHLORIDE
  5. MILK THISTLE [Concomitant]
     Active Substance: MILK THISTLE
  6. SELENIUM (UNSPECIFIED) [Concomitant]
     Active Substance: SELENIUM
  7. ASCORBIC ACID. [Concomitant]
     Active Substance: ASCORBIC ACID
  8. UBIDECARENONE [Concomitant]
     Active Substance: UBIDECARENONE
  9. ACTOS [Concomitant]
     Active Substance: PIOGLITAZONE HYDROCHLORIDE
  10. METANX [Concomitant]
     Active Substance: LEVOMEFOLATE CALCIUM\METHYLCOBALAMIN\PYRIDOXAL PHOSPHATE ANHYDROUS
  11. FOLBIC [Concomitant]
     Active Substance: CYANOCOBALAMIN\FOLIC ACID\PYRIDOXINE
  12. CALCIUM CITRATE [Concomitant]
     Active Substance: CALCIUM CITRATE
  13. VITAMIN E [Concomitant]
     Active Substance: .ALPHA.-TOCOPHEROL
  14. EVISTA [Concomitant]
     Active Substance: RALOXIFENE HYDROCHLORIDE
  15. AMITRIPTYLINE HYDROCHLORIDE. [Concomitant]
     Active Substance: AMITRIPTYLINE HYDROCHLORIDE
  16. OMEGA 100 [Concomitant]
  17. PSYLLIUM HUSK [Concomitant]
     Active Substance: PSYLLIUM HUSK

REACTIONS (6)
  - Anxiety [Unknown]
  - Paralysis [Unknown]
  - Gait disturbance [Unknown]
  - Pain [Unknown]
  - Tension [Unknown]
  - Muscular weakness [Unknown]

NARRATIVE: CASE EVENT DATE: 201402
